FAERS Safety Report 5084187-6 (Version None)
Quarter: 2006Q3

REPORT INFORMATION
  Report Type: 
  Country: None (occurrence: None)
  Receive Date: 20060821
  Receipt Date: 20050701
  Transmission Date: 20061208
  Serious: No
  Sender: FDA-Public Use
  Company Number: US-BRISTOL-MYERS SQUIBB COMPANY-13021977

PATIENT

DRUGS (1)
  1. TEQUIN [Suspect]
     Route: 048

REACTIONS (2)
  - HYPOAESTHESIA [None]
  - PHARYNGEAL OEDEMA [None]
